FAERS Safety Report 19083451 (Version 1)
Quarter: 2021Q2

REPORT INFORMATION
  Report Type: Spontaneous
  Country: KR (occurrence: KR)
  Receive Date: 20210401
  Receipt Date: 20210401
  Transmission Date: 20210717
  Serious: Yes (Hospitalization, Other)
  Sender: FDA-Public Use
  Company Number: KR-ACELLA PHARMACEUTICALS, LLC-2108764

PATIENT
  Age: 26 Year
  Sex: Male

DRUGS (1)
  1. DUTASTERIDE. [Suspect]
     Active Substance: DUTASTERIDE
     Indication: ALOPECIA
     Route: 065

REACTIONS (5)
  - Headache [Recovered/Resolved]
  - Diplopia [Recovered/Resolved]
  - Intracranial pressure increased [Recovered/Resolved]
  - Papilloedema [Recovering/Resolving]
  - Dizziness [Recovered/Resolved]
